FAERS Safety Report 21492553 (Version 3)
Quarter: 2022Q4

REPORT INFORMATION
  Report Type: Spontaneous
  Country: FR (occurrence: FR)
  Receive Date: 20221021
  Receipt Date: 20221212
  Transmission Date: 20230112
  Serious: Yes (Hospitalization, Other)
  Sender: FDA-Public Use
  Company Number: FR-ALIMERA SCIENCES LIMITED-FR-A16013-22-000223

PATIENT
  Age: 64 Year
  Sex: Male

DRUGS (1)
  1. ILUVIEN [Suspect]
     Active Substance: FLUOCINOLONE ACETONIDE
     Indication: Diabetic retinal oedema
     Dosage: 0.25 MICROGRAM, QD - RIGHT EYE
     Route: 031
     Dates: start: 20210927, end: 20220914

REACTIONS (4)
  - Medical device removal [Recovered/Resolved]
  - Ocular hypertension [Unknown]
  - Visual acuity reduced [Unknown]
  - Trabeculectomy [Recovered/Resolved]

NARRATIVE: CASE EVENT DATE: 20220831
